FAERS Safety Report 8490592-8 (Version None)
Quarter: 2012Q3

REPORT INFORMATION
  Report Type: 
  Country: None (occurrence: None)
  Receive Date: 20120705
  Receipt Date: 20120702
  Transmission Date: 20120928
  Serious: Yes (Life-Threatening)
  Sender: FDA-Public Use
  Company Number: BR-ABBOTT-12P-020-0952172-00

PATIENT
  Age: 12 Year
  Sex: Female
  Weight: 56 kg

DRUGS (3)
  1. DEPAKENE [Suspect]
     Indication: CONVULSION
     Dosage: 1 TABLET PER NIGHT
     Route: 048
  2. DEPAKENE [Suspect]
     Dosage: 4 TABLETS AT ONCE
     Dates: start: 20120702
  3. UNSPECIFIED DRUG [Concomitant]
     Indication: HEADACHE

REACTIONS (1)
  - INCORRECT DOSE ADMINISTERED [None]
